FAERS Safety Report 7466424-3 (Version None)
Quarter: 2011Q2

REPORT INFORMATION
  Report Type: 
  Country: None (occurrence: None)
  Receive Date: 20110509
  Receipt Date: 20100813
  Transmission Date: 20111010
  Serious: No
  Sender: FDA-Public Use
  Company Number: US-ALEXION-A201000994

PATIENT
  Sex: Female

DRUGS (1)
  1. SOLIRIS [Suspect]
     Indication: PAROXYSMAL NOCTURNAL HAEMOGLOBINURIA
     Route: 042

REACTIONS (6)
  - TREATMENT NONCOMPLIANCE [None]
  - SCAR [None]
  - SKIN DISCOLOURATION [None]
  - SKIN INFECTION [None]
  - DEPRESSION [None]
  - BLOOD URINE PRESENT [None]
